FAERS Safety Report 10102371 (Version 1)
Quarter: 2014Q2

REPORT INFORMATION
  Report Type: Report from Study
  Country: US (occurrence: US)
  Receive Date: 20140424
  Receipt Date: 20140424
  Transmission Date: 20141212
  Serious: Yes (Hospitalization)
  Sender: FDA-Public Use
  Company Number: PHEH2014US008069

PATIENT
  Sex: Female

DRUGS (5)
  1. TOBI [Suspect]
     Indication: CYSTIC FIBROSIS
     Dosage: 300 MG/5 ML, BID
     Route: 055
     Dates: end: 201309
  2. PULMOZYME [Concomitant]
     Dosage: UNK UKN, UNK
  3. CREON [Concomitant]
     Dosage: UNK UKN, UNK
  4. MULTIVIT//VITAMINS NOS [Concomitant]
     Dosage: UNK UKN, UNK
  5. ALBUTEROL [Concomitant]
     Dosage: UNK UKN, UNK

REACTIONS (3)
  - Cystic fibrosis [Recovering/Resolving]
  - Condition aggravated [Recovering/Resolving]
  - Weight decreased [Recovering/Resolving]
